FAERS Safety Report 9288670 (Version 1)
Quarter: 2013Q2

REPORT INFORMATION
  Report Type: Spontaneous
  Country: US (occurrence: None)
  Receive Date: 20130513
  Receipt Date: 20130513
  Transmission Date: 20140414
  Serious: Yes (Life-Threatening, Hospitalization)
  Sender: FDA-Public Use
  Company Number: None

PATIENT
  Age: 51 None
  Sex: Male
  Weight: 89.8 kg

DRUGS (1)
  1. ACETAMINOPHEN\HYDROCODONE [Suspect]
     Indication: PAIN
     Dosage: MG
     Route: 048
     Dates: start: 20120913, end: 20121127

REACTIONS (7)
  - Incorrect dose administered [None]
  - Divorced [None]
  - Tearfulness [None]
  - Miosis [None]
  - Pupillary reflex impaired [None]
  - Depression [None]
  - Sedation [None]
